FAERS Safety Report 15691265 (Version 2)
Quarter: 2019Q3

REPORT INFORMATION
  Report Type: Spontaneous
  Country: US (occurrence: US)
  Receive Date: 20181205
  Receipt Date: 20190717
  Transmission Date: 20191004
  Serious: Yes (Other)
  Sender: FDA-Public Use
  Company Number: US-SA-2018SA330298

PATIENT
  Age: 50 Year
  Sex: Female
  Weight: 47 kg

DRUGS (4)
  1. DOCETAXEL. [Suspect]
     Active Substance: DOCETAXEL
     Indication: BREAST CANCER FEMALE
     Dosage: 250 ML, QW
     Route: 042
     Dates: start: 20140523, end: 20140523
  2. DOCETAXEL. [Suspect]
     Active Substance: DOCETAXEL
     Dosage: 250 ML, QW
     Route: 042
     Dates: start: 20140613, end: 20140613
  3. PARAPLATIN [Concomitant]
     Active Substance: CARBOPLATIN
  4. TAMOXIFEN [Concomitant]
     Active Substance: TAMOXIFEN
     Dosage: UNK
     Dates: start: 201405

REACTIONS (1)
  - Alopecia [Recovering/Resolving]

NARRATIVE: CASE EVENT DATE: 201405
